FAERS Safety Report 4331557-7 (Version None)
Quarter: 2004Q2

REPORT INFORMATION
  Report Type: 
  Country: None (occurrence: None)
  Receive Date: 20040405
  Receipt Date: 20000804
  Transmission Date: 20050107
  Serious: Yes (Hospitalization)
  Sender: FDA-Public Use
  Company Number: SE-MERCK-00087270

PATIENT
  Age: 51 Year
  Sex: Female

DRUGS (9)
  1. FOLIC ACID [Concomitant]
     Route: 065
  2. GLYBURIDE [Concomitant]
     Route: 065
     Dates: end: 20000401
  3. INFLIXIMAB [Suspect]
     Indication: PSORIATIC ARTHROPATHY
     Route: 042
     Dates: start: 19991228, end: 20000427
  4. METHOTREXATE [Suspect]
     Indication: PSORIATIC ARTHROPATHY
     Route: 048
     Dates: end: 20000430
  5. OMEPRAZOLE MAGNESIUM [Suspect]
     Route: 048
     Dates: start: 19991207, end: 20000507
  6. OMEPRAZOLE MAGNESIUM [Suspect]
     Route: 048
     Dates: start: 19991207, end: 20000507
  7. VIOXX [Suspect]
     Indication: PSORIATIC ARTHROPATHY
     Route: 048
     Dates: start: 19991207, end: 20000507
  8. SERTRALINE HYDROCHLORIDE [Suspect]
     Indication: DEPRESSION
     Route: 048
     Dates: start: 19991101, end: 20000430
  9. SERTRALINE HYDROCHLORIDE [Suspect]
     Route: 048
     Dates: start: 19991101, end: 20000430

REACTIONS (11)
  - CHOLANGITIS [None]
  - FATIGUE [None]
  - HEPATIC CIRRHOSIS [None]
  - HEPATIC FIBROSIS [None]
  - HEPATIC STEATOSIS [None]
  - JAUNDICE [None]
  - LIVER DISORDER [None]
  - MUSCLE ATROPHY [None]
  - NAUSEA [None]
  - PRURITUS [None]
  - VASCULITIS [None]
